FAERS Safety Report 10364403 (Version 1)
Quarter: 2014Q3

REPORT INFORMATION
  Report Type: Spontaneous
  Country: US (occurrence: None)
  Receive Date: 20140805
  Receipt Date: 20140805
  Transmission Date: 20150326
  Serious: Yes (Death, Life-Threatening, Hospitalization, Disabling, Other)
  Sender: FDA-Public Use
  Company Number: None

PATIENT

DRUGS (2)
  1. DILAUDID [Suspect]
     Active Substance: HYDROMORPHONE HYDROCHLORIDE
     Indication: NECK PAIN
  2. TYLENOL [Suspect]
     Active Substance: ACETAMINOPHEN
     Indication: MUSCLE SPASMS
     Route: 048

REACTIONS (12)
  - Asthenia [None]
  - Hepatic failure [None]
  - Feeling abnormal [None]
  - Abasia [None]
  - Confusional state [None]
  - Nausea [None]
  - Pruritus [None]
  - Unresponsive to stimuli [None]
  - Hypoxic-ischaemic encephalopathy [None]
  - Infection [None]
  - Accidental overdose [None]
  - Nervous system disorder [None]
